FAERS Safety Report 7888257-6 (Version None)
Quarter: 2011Q4

REPORT INFORMATION
  Report Type: 
  Country: None (occurrence: None)
  Receive Date: 20111103
  Receipt Date: 20111019
  Transmission Date: 20120403
  Serious: Yes (Hospitalization)
  Sender: FDA-Public Use
  Company Number: IN-SANOFI-AVENTIS-2011SA068406

PATIENT
  Age: 61 Year
  Sex: Male

DRUGS (16)
  1. TORSEMIDE [Suspect]
     Route: 065
  2. CEFTRIAXONE [Concomitant]
     Indication: SEPSIS
  3. TAZOBACTAM [Concomitant]
     Indication: SEPSIS
  4. ANTIBIOTICS [Concomitant]
     Indication: SEPSIS
  5. ATENOLOL [Concomitant]
  6. AMILORIDE HYDROCHLORIDE [Concomitant]
  7. TEICOPLANIN [Concomitant]
     Indication: SEPSIS
  8. ANTIBIOTICS [Concomitant]
  9. CEFOTAXIME [Concomitant]
     Indication: SEPSIS
  10. METOLAZONE [Suspect]
     Route: 065
  11. AMLODIPINE [Concomitant]
  12. ASPIRIN [Concomitant]
  13. ALL OTHER THERAPEUTIC PRODUCTS [Concomitant]
     Route: 042
  14. FUROSEMIDE [Suspect]
     Route: 065
  15. MEROPENEM [Concomitant]
     Indication: SEPSIS
  16. CASPOFUNGIN ACETATE [Concomitant]
     Indication: SEPSIS

REACTIONS (4)
  - RENAL IMPAIRMENT [None]
  - BLOOD CREATININE INCREASED [None]
  - AZOTAEMIA [None]
  - BLOOD UREA INCREASED [None]
